FAERS Safety Report 9161935 (Version 2)
Quarter: 2013Q1

REPORT INFORMATION
  Report Type: Spontaneous
  Country: GB (occurrence: GB)
  Receive Date: 20130314
  Receipt Date: 20130322
  Transmission Date: 20140127
  Serious: Yes (Hospitalization, Other)
  Sender: FDA-Public Use
  Company Number: GB-JNJFOC-20130301383

PATIENT
  Age: 68 Year
  Sex: Female
  Weight: 63 kg

DRUGS (6)
  1. NORETHISTERONE [Suspect]
     Indication: MENORRHAGIA
     Route: 065
  2. NORETHISTERONE [Suspect]
     Indication: MENORRHAGIA
     Route: 065
  3. MARVELON [Suspect]
     Indication: MENORRHAGIA
     Route: 065
  4. DUPHASTON [Suspect]
     Indication: MENORRHAGIA
     Route: 065
  5. MODURET [Suspect]
     Indication: HYPERTENSION
     Route: 065
  6. CANESTEN [Concomitant]
     Indication: PRODUCT USED FOR UNKNOWN INDICATION
     Dosage: 2 YEARS
     Route: 065

REACTIONS (7)
  - Activities of daily living impaired [Not Recovered/Not Resolved]
  - Psychomotor hyperactivity [Not Recovered/Not Resolved]
  - Insomnia [Not Recovered/Not Resolved]
  - Sepsis [Not Recovered/Not Resolved]
  - Gait disturbance [Not Recovered/Not Resolved]
  - Weight decreased [Not Recovered/Not Resolved]
  - Off label use [Unknown]
